FAERS Safety Report 19351749 (Version 2)
Quarter: 2021Q2

REPORT INFORMATION
  Report Type: Spontaneous
  Country: US (occurrence: US)
  Receive Date: 20210531
  Receipt Date: 20210604
  Transmission Date: 20210717
  Serious: No
  Sender: FDA-Public Use
  Company Number: US-SA-2021SA178526

PATIENT
  Age: 84 Year
  Sex: Male

DRUGS (1)
  1. FEXOFENADINE HYDROCHLORIDE. [Suspect]
     Active Substance: FEXOFENADINE HYDROCHLORIDE
     Indication: DERMATITIS ALLERGIC
     Dosage: UNK UNK, QD
     Route: 065

REACTIONS (4)
  - Dizziness [Unknown]
  - Dry mouth [Unknown]
  - Extra dose administered [Unknown]
  - Somnolence [Unknown]
